FAERS Safety Report 7579569-4 (Version None)
Quarter: 2011Q2

REPORT INFORMATION
  Report Type: 
  Country: None (occurrence: None)
  Receive Date: 20110629
  Receipt Date: 20110624
  Transmission Date: 20111010
  Serious: Yes (Life-Threatening, Hospitalization, Other)
  Sender: FDA-Public Use
  Company Number: FR-JNJFOC-20110610635

PATIENT
  Age: 38 Year
  Sex: Male

DRUGS (3)
  1. TERCIAN [Concomitant]
     Indication: PRODUCT USED FOR UNKNOWN INDICATION
     Route: 065
  2. RISPERDAL CONSTA [Suspect]
     Indication: PSYCHOTIC DISORDER
     Dosage: INITIATED FOR MORE THAN 2 YEARS WITHOUT PROBLEM
     Route: 030
  3. UNKNOWN MEDICATION [Concomitant]
     Indication: PRODUCT USED FOR UNKNOWN INDICATION
     Dosage: DRUG NAME: LACTAMIDE
     Route: 065

REACTIONS (4)
  - HYPONATRAEMIA [None]
  - RHABDOMYOLYSIS [None]
  - COMA [None]
  - OVERDOSE [None]
